FAERS Safety Report 9440750 (Version 1)
Quarter: 2013Q3

REPORT INFORMATION
  Report Type: Spontaneous
  Country: SE (occurrence: None)
  Receive Date: 20130801
  Receipt Date: 20130801
  Transmission Date: 20140515
  Serious: Yes (Other)
  Sender: FDA-Public Use
  Company Number: SYM-2013-07453

PATIENT
  Sex: Female

DRUGS (3)
  1. MESTINON [Suspect]
     Indication: MYASTHENIA GRAVIS
     Dosage: 60 MG, 4 IN 1 D
  2. STALEVO [Concomitant]
  3. XARELTO (RIVAROXABAN) (20 MILLIGRAM) (RIVAROXABAN) [Concomitant]

REACTIONS (2)
  - Atrial fibrillation [None]
  - Feeling abnormal [None]
